FAERS Safety Report 5280557-1 (Version None)
Quarter: 2007Q1

REPORT INFORMATION
  Report Type: 
  Country: None (occurrence: None)
  Receive Date: 20061229
  Receipt Date: 20060817
  Transmission Date: 20070707
  Serious: Yes (Other)
  Sender: FDA-Public Use
  Company Number: 2006UW16435

PATIENT
  Age: 80 Year
  Sex: Female
  Weight: 57.606 kg

DRUGS (5)
  1. CRESTOR [Suspect]
     Indication: BLOOD CHOLESTEROL INCREASED
     Dosage: 10 MG DAILY PO
     Route: 048
  2. PLAVIX [Suspect]
  3. TOPROL-XL [Concomitant]
  4. ASPIRIN [Concomitant]
  5. VITAMINS [Concomitant]

REACTIONS (2)
  - CONSTIPATION [None]
  - EYELID DISORDER [None]
